FAERS Safety Report 7273212-X (Version None)
Quarter: 2011Q1

REPORT INFORMATION
  Report Type: 
  Country: None (occurrence: None)
  Receive Date: 20110126
  Receipt Date: 20110111
  Transmission Date: 20110831
  Serious: Yes (Death)
  Sender: FDA-Public Use
  Company Number: 2011AP000027

PATIENT
  Age: 59 Year
  Sex: Male

DRUGS (2)
  1. OLANZAPINE [Concomitant]
  2. RISPERIDONE [Suspect]
     Indication: PRODUCT USED FOR UNKNOWN INDICATION

REACTIONS (2)
  - OBESITY [None]
  - INCREASED APPETITE [None]
